FAERS Safety Report 8028387-1 (Version None)
Quarter: 2012Q1

REPORT INFORMATION
  Report Type: 
  Country: None (occurrence: None)
  Receive Date: 20120106
  Receipt Date: 20120103
  Transmission Date: 20120608
  Serious: Yes (Hospitalization)
  Sender: FDA-Public Use
  Company Number: US-BAYER-2011-102672

PATIENT
  Age: 27 Year
  Sex: Female
  Weight: 67.574 kg

DRUGS (3)
  1. MIRENA [Suspect]
     Indication: MENORRHAGIA
  2. MIRENA [Suspect]
     Indication: CONTRACEPTION
     Dosage: 20 MCG/24HR, CONT
     Route: 015
     Dates: start: 20111004, end: 20111005
  3. HURRICANE GEL AND SPRAY [Concomitant]
     Indication: ANALGESIC THERAPY
     Dosage: UNK
     Route: 061
     Dates: start: 20111004

REACTIONS (3)
  - ABDOMINAL PAIN [None]
  - UTERINE PERFORATION [None]
  - DEVICE DIFFICULT TO USE [None]
